FAERS Safety Report 6679277-8 (Version None)
Quarter: 2010Q2

REPORT INFORMATION
  Report Type: 
  Country: None (occurrence: None)
  Receive Date: 20100409
  Receipt Date: 20100330
  Transmission Date: 20101027
  Serious: Yes (Hospitalization)
  Sender: FDA-Public Use
  Company Number: 552617

PATIENT
  Age: 58 Year
  Sex: Male

DRUGS (4)
  1. OXALIPLATIN [Suspect]
     Indication: RECTAL CANCER METASTATIC
  2. (CETUXIMAB) [Suspect]
     Indication: RECTAL CANCER METASTATIC
  3. (TEGAFUR URACIL) [Suspect]
     Indication: RECTAL CANCER METASTATIC
  4. (FOLINIC ACID) [Suspect]
     Indication: RECTAL CANCER METASTATIC

REACTIONS (13)
  - ANAEMIA [None]
  - DEHYDRATION [None]
  - DIARRHOEA [None]
  - DRUG TOXICITY [None]
  - INTESTINAL ISCHAEMIA [None]
  - JEJUNAL PERFORATION [None]
  - MUCOSAL INFLAMMATION [None]
  - OLIGURIA [None]
  - PERITONITIS [None]
  - PLATELET COUNT DECREASED [None]
  - PNEUMATOSIS INTESTINALIS [None]
  - PORTAL VENOUS GAS [None]
  - VOLVULUS [None]
